FAERS Safety Report 8465264-6 (Version None)
Quarter: 2012Q2

REPORT INFORMATION
  Report Type: 
  Country: None (occurrence: None)
  Receive Date: 20120626
  Receipt Date: 20120621
  Transmission Date: 20120825
  Serious: Yes (Hospitalization)
  Sender: FDA-Public Use
  Company Number: PHHY2012FR054022

PATIENT
  Age: 75 Year
  Sex: Female

DRUGS (6)
  1. MODOPAR [Concomitant]
     Dosage: 3 DF, DAILY
  2. TEGRETOL [Suspect]
     Dosage: 100 MG, DAILY
     Route: 048
     Dates: start: 20120401, end: 20120502
  3. MEMANTINE HYDROCHLORIDE [Concomitant]
     Dosage: 20 MG, DAILY
  4. XANAX [Concomitant]
     Dosage: 0.25 MG, DAILY
  5. OXAZEPAM [Concomitant]
     Dosage: 50 MG, DAILY
  6. ARICEPT [Concomitant]
     Dosage: 10 MG, DAILY

REACTIONS (4)
  - FALL [None]
  - HYPONATRAEMIA [None]
  - CONFUSIONAL STATE [None]
  - AGITATION [None]
